FAERS Safety Report 13669226 (Version 7)
Quarter: 2017Q4

REPORT INFORMATION
  Report Type: Report from Study
  Country: CA (occurrence: CA)
  Receive Date: 20170620
  Receipt Date: 20171213
  Transmission Date: 20180320
  Serious: Yes (Other)
  Sender: FDA-Public Use
  Company Number: CA-SA-2016SA230782

PATIENT
  Age: 26 Year
  Sex: Female

DRUGS (12)
  1. ACYCLOVIR. [Concomitant]
     Active Substance: ACYCLOVIR
     Indication: PREMEDICATION
     Route: 048
     Dates: start: 20161213
  2. TAPAZOLE [Concomitant]
     Active Substance: METHIMAZOLE
     Indication: HYPERTHYROIDISM
     Route: 048
     Dates: start: 201611
  3. TAPAZOLE [Concomitant]
     Active Substance: METHIMAZOLE
     Indication: HYPERTHYROIDISM
     Route: 048
  4. LEMTRADA [Suspect]
     Active Substance: ALEMTUZUMAB
     Indication: RELAPSING-REMITTING MULTIPLE SCLEROSIS
     Route: 041
     Dates: start: 20161213, end: 20161215
  5. METHYLPREDNISOLONE. [Concomitant]
     Active Substance: METHYLPREDNISOLONE
     Indication: PREMEDICATION
     Route: 042
     Dates: start: 20161213, end: 20161215
  6. TAPAZOLE [Concomitant]
     Active Substance: METHIMAZOLE
     Indication: HYPERTHYROIDISM
     Route: 048
  7. RISPERDAL [Suspect]
     Active Substance: RISPERIDONE
     Route: 065
  8. ACETAMINOPHEN. [Concomitant]
     Active Substance: ACETAMINOPHEN
     Indication: PREMEDICATION
     Route: 048
     Dates: start: 20161213
  9. RANITIDINE. [Concomitant]
     Active Substance: RANITIDINE
     Indication: PREMEDICATION
     Route: 048
     Dates: start: 20161213, end: 20161215
  10. LEMTRADA [Suspect]
     Active Substance: ALEMTUZUMAB
     Indication: RELAPSING-REMITTING MULTIPLE SCLEROSIS
     Route: 041
     Dates: start: 20161213, end: 20161215
  11. BENADRYL [Concomitant]
     Active Substance: DIPHENHYDRAMINE HYDROCHLORIDE
     Indication: ANTIALLERGIC THERAPY
     Route: 048
     Dates: start: 20161215
  12. REACTINE [Concomitant]
     Active Substance: CETIRIZINE HYDROCHLORIDE
     Indication: PREMEDICATION
     Route: 048
     Dates: start: 20161213, end: 20161215

REACTIONS (35)
  - Confusional state [Recovered/Resolved]
  - Haemoglobin decreased [Recovered/Resolved]
  - Blood urine present [Recovered/Resolved]
  - Blood prolactin increased [Not Recovered/Not Resolved]
  - Psychotic disorder [Recovered/Resolved]
  - Hallucination, visual [Recovered/Resolved]
  - Cough [Recovered/Resolved]
  - Chest discomfort [Recovered/Resolved]
  - Lymphocyte percentage decreased [Recovered/Resolved]
  - Thyroxine free decreased [Recovered/Resolved]
  - Palpitations [Recovered/Resolved]
  - Throat irritation [Recovered/Resolved]
  - Red cell distribution width increased [Recovered/Resolved]
  - Neutrophil percentage increased [Recovered/Resolved]
  - Cells in urine [Unknown]
  - Urine leukocyte esterase positive [Recovered/Resolved]
  - Blood thyroid stimulating hormone decreased [Not Recovered/Not Resolved]
  - Feeling abnormal [Recovered/Resolved]
  - Bilirubin urine present [Recovered/Resolved]
  - Headache [Recovered/Resolved]
  - Rash [Not Recovered/Not Resolved]
  - Lymphocyte count decreased [Recovered/Resolved]
  - Central nervous system lesion [Not Recovered/Not Resolved]
  - Dyspnoea [Recovered/Resolved]
  - Multiple sclerosis relapse [Recovered/Resolved]
  - Crystal urine present [Not Recovered/Not Resolved]
  - Amenorrhoea [Not Recovered/Not Resolved]
  - Mean cell haemoglobin decreased [Recovered/Resolved]
  - Tri-iodothyronine free increased [Recovered/Resolved]
  - Urine analysis abnormal [Not Recovered/Not Resolved]
  - Thinking abnormal [Recovered/Resolved]
  - White blood cells urine positive [Unknown]
  - Haematocrit decreased [Recovered/Resolved]
  - Heart rate increased [Recovered/Resolved]
  - Galactorrhoea [Not Recovered/Not Resolved]

NARRATIVE: CASE EVENT DATE: 20161213
